FAERS Safety Report 19308560 (Version 1)
Quarter: 2021Q2

REPORT INFORMATION
  Report Type: Spontaneous
  Country: NL (occurrence: NL)
  Receive Date: 20210525
  Receipt Date: 20210525
  Transmission Date: 20210717
  Serious: Yes (Other)
  Sender: FDA-Public Use
  Company Number: NL-BIOMARINAP-NL-2021-136699

PATIENT
  Sex: Male

DRUGS (3)
  1. CLEMASTINE MILSTEIN [Concomitant]
     Indication: PREMEDICATION
     Dosage: 0.025 MILLIGRAM/KILOGRAM
  2. PARACETAMOL [Concomitant]
     Active Substance: ACETAMINOPHEN
     Indication: PREMEDICATION
  3. BRINEURA [Suspect]
     Active Substance: CERLIPONASE ALFA
     Indication: NEURONAL CEROID LIPOFUSCINOSIS
     Dosage: 300 MILLIGRAM, QOW
     Route: 020

REACTIONS (2)
  - Infusion related reaction [Unknown]
  - White matter lesion [Unknown]
